FAERS Safety Report 5449780-7 (Version None)
Quarter: 2007Q3

REPORT INFORMATION
  Report Type: 
  Country: None (occurrence: None)
  Receive Date: 20070910
  Receipt Date: 20070910
  Transmission Date: 20080115
  Serious: No
  Sender: FDA-Public Use
  Company Number: None

PATIENT
  Sex: Female
  Weight: 78 kg

DRUGS (8)
  1. TAXOL [Suspect]
     Dosage: 322 MG
  2. ALEVE [Concomitant]
  3. HYDROCHLOROTHIAZIDE [Concomitant]
  4. LISINOPRIL [Concomitant]
  5. OXYCODONE HCL [Concomitant]
  6. SINGULAIR [Concomitant]
  7. TRIAMTERENE [Concomitant]
  8. VYTORIN [Concomitant]

REACTIONS (8)
  - CONVULSION [None]
  - DIZZINESS [None]
  - FALL [None]
  - FOAMING AT MOUTH [None]
  - HYPERHIDROSIS [None]
  - SYNCOPE VASOVAGAL [None]
  - VOMITING [None]
  - WHITE BLOOD CELL COUNT INCREASED [None]
